FAERS Safety Report 8491615 (Version 3)
Quarter: 2013Q1

REPORT INFORMATION
  Report Type: Report from Study
  Country: GB (occurrence: GB)
  Receive Date: 20120403
  Receipt Date: 20130211
  Transmission Date: 20140127
  Serious: Yes (Death)
  Sender: FDA-Public Use
  Company Number: GB-PFIZER INC-2012081108

PATIENT
  Age: 59 Year
  Sex: Female

DRUGS (4)
  1. AXITINIB [Suspect]
     Indication: METASTATIC RENAL CELL CARCINOMA
     Dosage: 5 MG, 1X/DAY
     Dates: start: 20091230
  2. AXITINIB [Suspect]
     Dosage: 7 MG, 2X/DAY
  3. AXITINIB [Suspect]
     Dosage: 10 MG, 2X/DAY
  4. AXITINIB [Suspect]
     Dosage: 7 MG, 2X/DAY
     Dates: end: 20120524

REACTIONS (5)
  - Coronary artery thrombosis [Fatal]
  - Arteriosclerosis coronary artery [Fatal]
  - Myocardial infarction [Fatal]
  - Disease progression [Fatal]
  - Renal cancer [Fatal]
